FAERS Safety Report 8070318-2 (Version None)
Quarter: 2012Q1

REPORT INFORMATION
  Report Type: 
  Country: None (occurrence: None)
  Receive Date: 20120125
  Receipt Date: 20120116
  Transmission Date: 20120608
  Serious: Yes (Hospitalization, Other)
  Sender: FDA-Public Use
  Company Number: AU-UCBSA-049684

PATIENT
  Sex: Male

DRUGS (9)
  1. CITALOPRAM HYDROBROMIDE [Interacting]
     Dosage: STOPPED 1 WEEK BEFORE 2ND HOSPITALIZATION
     Route: 048
  2. LAMOTRIGINE [Interacting]
     Indication: COMPLEX PARTIAL SEIZURES
     Route: 048
  3. VIMPAT [Interacting]
     Route: 048
  4. VIMPAT [Suspect]
     Indication: COMPLEX PARTIAL SEIZURES
     Route: 048
     Dates: start: 20120101, end: 20120114
  5. VIMPAT [Interacting]
     Route: 048
     Dates: start: 20111101
  6. CLONAZEPAM [Interacting]
     Indication: COMPLEX PARTIAL SEIZURES
     Route: 048
  7. ANTI-DEPPRESSANT [Interacting]
     Indication: DEPRESSION
     Route: 048
  8. VALPROATE SODIUM [Interacting]
     Indication: COMPLEX PARTIAL SEIZURES
     Route: 048
  9. TOPAMAX [Interacting]
     Indication: COMPLEX PARTIAL SEIZURES

REACTIONS (4)
  - PATHOLOGICAL GAMBLING [None]
  - DRUG INTERACTION [None]
  - SUICIDE ATTEMPT [None]
  - INTENTIONAL OVERDOSE [None]
